FAERS Safety Report 20785007 (Version 1)
Quarter: 2022Q2

REPORT INFORMATION
  Report Type: Spontaneous
  Country: US (occurrence: None)
  Receive Date: 20220503
  Receipt Date: 20220503
  Transmission Date: 20220720
  Serious: Yes (Hospitalization)
  Sender: FDA-Public Use
  Company Number: None

PATIENT
  Age: 70 Year
  Sex: Male
  Weight: 71.1 kg

DRUGS (1)
  1. ELIQUIS [Suspect]
     Active Substance: APIXABAN
     Dosage: FREQUENCY : TWICE A DAY;?
     Route: 048

REACTIONS (6)
  - Gastrointestinal haemorrhage [None]
  - Haemoglobin decreased [None]
  - Hypotension [None]
  - Unresponsive to stimuli [None]
  - Tachycardia [None]
  - Haemodynamic instability [None]

NARRATIVE: CASE EVENT DATE: 20210810
